FAERS Safety Report 14258856 (Version 1)
Quarter: 2017Q4

REPORT INFORMATION
  Report Type: Spontaneous
  Country: US (occurrence: US)
  Receive Date: 20171207
  Receipt Date: 20171207
  Transmission Date: 20180321
  Serious: No
  Sender: FDA-Public Use
  Company Number: US-STRONGBRIDGE BIOPHARMA-2017-STR-000145

PATIENT
  Age: 59 Year
  Sex: Male

DRUGS (2)
  1. KEVEYIS [Suspect]
     Active Substance: DICHLORPHENAMIDE
     Dosage: 150 MG, QD
     Route: 048
     Dates: start: 2017
  2. KEVEYIS [Suspect]
     Active Substance: DICHLORPHENAMIDE
     Indication: PRODUCT USED FOR UNKNOWN INDICATION
     Dosage: 200 MG, QD
     Route: 048
     Dates: start: 20170420, end: 2017

REACTIONS (3)
  - Confusional state [Not Recovered/Not Resolved]
  - Depressed mood [Not Recovered/Not Resolved]
  - Intentional product use issue [Unknown]

NARRATIVE: CASE EVENT DATE: 2017
